FAERS Safety Report 14906025 (Version 2)
Quarter: 2018Q3

REPORT INFORMATION
  Report Type: Spontaneous
  Country: US (occurrence: US)
  Receive Date: 20180517
  Receipt Date: 20180803
  Transmission Date: 20181010
  Serious: No
  Sender: FDA-Public Use
  Company Number: US-SA-2018SA075653

PATIENT
  Age: 68 Year
  Sex: Female
  Weight: 78.01 kg

DRUGS (3)
  1. GLIPIZIDE. [Concomitant]
     Active Substance: GLIPIZIDE
     Dosage: UNK
  2. METFORMIN [Concomitant]
     Active Substance: METFORMIN HYDROCHLORIDE
     Dosage: UNK
  3. LANTUS SOLOSTAR [Suspect]
     Active Substance: INSULIN GLARGINE
     Indication: DIABETES MELLITUS
     Dosage: 10 U, BID
     Route: 051
     Dates: start: 2016

REACTIONS (5)
  - Malaise [Unknown]
  - Product storage error [Unknown]
  - Cough [Unknown]
  - Product use issue [Unknown]
  - Nasopharyngitis [Unknown]
